FAERS Safety Report 14118951 (Version 1)
Quarter: 2017Q4

REPORT INFORMATION
  Report Type: Spontaneous
  Country: US (occurrence: None)
  Receive Date: 20171023
  Receipt Date: 20171023
  Transmission Date: 20180321
  Serious: Yes (Death)
  Sender: FDA-Public Use
  Company Number: None

PATIENT
  Age: 102 Year
  Sex: Male

DRUGS (6)
  1. VALSARTAN. [Concomitant]
     Active Substance: VALSARTAN
  2. METHIMAXOLE [Concomitant]
  3. ALPRAZOLAM. [Concomitant]
     Active Substance: ALPRAZOLAM
  4. PAROXETINE. [Concomitant]
     Active Substance: PAROXETINE
  5. FELODIPINE. [Concomitant]
     Active Substance: FELODIPINE
  6. LUPRON DEPOT [Suspect]
     Active Substance: LEUPROLIDE ACETATE
     Indication: NEOPLASM MALIGNANT
     Dosage: 30MG EVERY 4 MONTHS SUB-Q
     Route: 058
     Dates: start: 20050401

REACTIONS (1)
  - Death [None]

NARRATIVE: CASE EVENT DATE: 20171006
